FAERS Safety Report 20565860 (Version 1)
Quarter: 2022Q1

REPORT INFORMATION
  Report Type: Spontaneous
  Country: US (occurrence: US)
  Receive Date: 20220308
  Receipt Date: 20220308
  Transmission Date: 20220423
  Serious: Yes (Other)
  Sender: FDA-Public Use
  Company Number: US-MYLANLABS-2022M1017728

PATIENT
  Sex: Female

DRUGS (9)
  1. TOPIRAMATE [Suspect]
     Active Substance: TOPIRAMATE
     Indication: Jeavons syndrome
     Dosage: UNK
     Route: 065
  2. LEVETIRACETAM [Suspect]
     Active Substance: LEVETIRACETAM
     Indication: Jeavons syndrome
     Dosage: UNK
     Route: 065
  3. RUFINAMIDE [Suspect]
     Active Substance: RUFINAMIDE
     Indication: Jeavons syndrome
     Dosage: UNK
     Route: 065
  4. VALPROIC ACID [Suspect]
     Active Substance: VALPROIC ACID
     Indication: Jeavons syndrome
     Dosage: UNK
     Route: 065
  5. ZONISAMIDE [Suspect]
     Active Substance: ZONISAMIDE
     Indication: Jeavons syndrome
     Dosage: UNK
     Route: 065
  6. EPIDIOLEX [Concomitant]
     Active Substance: CANNABIDIOL
     Indication: Jeavons syndrome
     Route: 065
  7. EPIDIOLEX [Concomitant]
     Active Substance: CANNABIDIOL
     Dosage: 10 MILLIGRAM, QD
     Route: 065
  8. ETHOSUXIMIDE [Concomitant]
     Active Substance: ETHOSUXIMIDE
     Indication: Jeavons syndrome
     Dosage: UNK
     Route: 065
  9. CLONAZEPAM [Concomitant]
     Active Substance: CLONAZEPAM
     Indication: Jeavons syndrome
     Dosage: UNK
     Route: 065

REACTIONS (6)
  - Seizure [Unknown]
  - Condition aggravated [Unknown]
  - Drug ineffective [Unknown]
  - Weight decreased [Unknown]
  - Anger [Unknown]
  - Anaemia [Unknown]
